FAERS Safety Report 22346275 (Version 1)
Quarter: 2023Q2

REPORT INFORMATION
  Report Type: Spontaneous
  Country: BE (occurrence: BE)
  Receive Date: 20230519
  Receipt Date: 20230519
  Transmission Date: 20230722
  Serious: Yes (Hospitalization, Other)
  Sender: FDA-Public Use
  Company Number: BE-INSUD PHARMA-2305BE02933

PATIENT

DRUGS (6)
  1. OMEPRAZOLE [Suspect]
     Active Substance: OMEPRAZOLE
     Indication: Gastritis
     Dosage: 2.5 ML/DOSE OF 2 MG/ML COMPOUNDED SUSPENSION BID
     Route: 048
  2. OMEPRAZOLE [Suspect]
     Active Substance: OMEPRAZOLE
     Dosage: FROM HOSPITAL PHARMACY
     Route: 048
  3. OMEPRAZOLE [Suspect]
     Active Substance: OMEPRAZOLE
     Dosage: 2.5 ML/DOSE OF 2 MG/ML COMPOUNDED SUSPENSION BID
     Route: 048
  4. BETAMETHASONE VALERATE [Suspect]
     Active Substance: BETAMETHASONE VALERATE
     Indication: Medication error
     Dosage: COMPOUNDING ERROR
     Route: 048
  5. BETAMETHASONE VALERATE [Suspect]
     Active Substance: BETAMETHASONE VALERATE
     Dosage: FROM HOSPITAL PHARMACY
     Route: 048
  6. BETAMETHASONE VALERATE [Suspect]
     Active Substance: BETAMETHASONE VALERATE
     Dosage: COMPOUNDING ERROR
     Route: 048

REACTIONS (13)
  - Cushing^s syndrome [Recovered/Resolved]
  - Polydipsia [Recovered/Resolved]
  - Polyuria [Recovered/Resolved]
  - Discomfort [Recovered/Resolved]
  - Crying [Recovered/Resolved]
  - Skin swelling [Recovered/Resolved]
  - Weight increased [Recovered/Resolved]
  - Cushingoid [Recovered/Resolved]
  - Acne [Recovered/Resolved]
  - Hirsutism [Recovered/Resolved]
  - Central obesity [Recovered/Resolved]
  - Iatrogenic injury [Unknown]
  - Product preparation error [Unknown]
